FAERS Safety Report 9036094 (Version 1)
Quarter: 2013Q1

REPORT INFORMATION
  Report Type: Report from Study
  Country: US (occurrence: US)
  Receive Date: 20130129
  Receipt Date: 20130129
  Transmission Date: 20140127
  Serious: No
  Sender: FDA-Public Use
  Company Number: US-ABBOTT-12P-163-0925338-00

PATIENT
  Age: 63 Year
  Sex: Female

DRUGS (9)
  1. HUMIRA 40 MG/0.8 ML PEN [Suspect]
     Indication: CROHN^S DISEASE
     Dates: start: 20120411
  2. ZOLOFT [Concomitant]
     Indication: DEPRESSION
     Dosage: 75 MG DAILY
  3. BIOFILM SUPPLEMENT [Concomitant]
     Indication: HAIR DISORDER
  4. BIOFILM SUPPLEMENT [Concomitant]
     Indication: SKIN DISORDER
  5. BIOFILM SUPPLEMENT [Concomitant]
     Indication: NAIL DISORDER
  6. BIOFILM SUPPLEMENT [Concomitant]
     Indication: BONE DISORDER
  7. LOPED [Concomitant]
     Indication: PRODUCT USED FOR UNKNOWN INDICATION
     Dosage: 2 PILLS PER DAY, 1/2 HOUR BEFORE MEALS
  8. PRILOSEC [Concomitant]
     Indication: PRODUCT USED FOR UNKNOWN INDICATION
     Dosage: 1 PILL PER DAY
  9. ALIGN [Concomitant]
     Indication: PRODUCT USED FOR UNKNOWN INDICATION
     Dosage: 1 PILL PER DAY

REACTIONS (2)
  - Injection site pain [Not Recovered/Not Resolved]
  - Pain [Not Recovered/Not Resolved]
